FAERS Safety Report 5684263-0 (Version None)
Quarter: 2008Q1

REPORT INFORMATION
  Report Type: 
  Country: None (occurrence: None)
  Receive Date: 20080328
  Receipt Date: 20080320
  Transmission Date: 20080703
  Serious: Yes (Hospitalization)
  Sender: FDA-Public Use
  Company Number: GB-ASTRAZENECA-2008GB00549

PATIENT
  Age: 86 Year
  Sex: Male

DRUGS (9)
  1. ATENOLOL [Suspect]
     Route: 065
  2. ACETYLSALICYLIC ACID SRT [Suspect]
  3. AQUEOUS CREAM [Suspect]
  4. BENDROFLUMETHIAZIDE [Suspect]
  5. CHLORPHENIRAMINE MALEATE [Suspect]
  6. DIGOXIN [Suspect]
  7. LACTULOSE [Suspect]
     Route: 048
  8. PREDNISOLONE [Suspect]
  9. URSODIOL [Suspect]

REACTIONS (1)
  - JAUNDICE [None]
